FAERS Safety Report 15703921 (Version 1)
Quarter: 2018Q4

REPORT INFORMATION
  Report Type: Spontaneous
  Country: US (occurrence: US)
  Receive Date: 20181210
  Receipt Date: 20181210
  Transmission Date: 20190205
  Serious: No
  Sender: FDA-Public Use
  Company Number: US-ASTRAZENECA-2018SF59947

PATIENT
  Sex: Female
  Weight: 115.2 kg

DRUGS (2)
  1. ALBUTEROL. [Concomitant]
     Active Substance: ALBUTEROL
     Indication: INHALATION THERAPY
  2. PULMICORT FLEXHALER [Suspect]
     Active Substance: BUDESONIDE
     Indication: ASTHMA
     Route: 055

REACTIONS (6)
  - Drug ineffective [Unknown]
  - Wheezing [Not Recovered/Not Resolved]
  - Product dose omission [Unknown]
  - Intentional device misuse [Not Recovered/Not Resolved]
  - Body height decreased [Not Recovered/Not Resolved]
  - Device issue [Unknown]
